FAERS Safety Report 6284845-1 (Version None)
Quarter: 2009Q3

REPORT INFORMATION
  Report Type: 
  Country: None (occurrence: None)
  Receive Date: 20090727
  Receipt Date: 20090719
  Transmission Date: 20100115
  Serious: Yes (Hospitalization)
  Sender: FDA-Public Use
  Company Number: A0718393A

PATIENT
  Sex: Female
  Weight: 73.6 kg

DRUGS (4)
  1. PAZOPANIB [Suspect]
     Indication: BREAST CANCER METASTATIC
     Dosage: 800MG PER DAY
     Route: 048
     Dates: start: 20080317
  2. LAPATINIB [Suspect]
     Indication: BREAST CANCER METASTATIC
     Dosage: 1500MG PER DAY
     Route: 048
     Dates: start: 20080317
  3. IBUPROFEN [Concomitant]
  4. CIPROFLOXACIN [Concomitant]

REACTIONS (11)
  - ALANINE AMINOTRANSFERASE INCREASED [None]
  - ASPARTATE AMINOTRANSFERASE INCREASED [None]
  - BLOOD ALKALINE PHOSPHATASE INCREASED [None]
  - BLOOD BILIRUBIN INCREASED [None]
  - DIARRHOEA [None]
  - HEPATIC ENZYME INCREASED [None]
  - HEPATIC STEATOSIS [None]
  - HEPATOMEGALY [None]
  - NAUSEA [None]
  - PYREXIA [None]
  - VOMITING [None]
